FAERS Safety Report 5076022-7 (Version None)
Quarter: 2006Q3

REPORT INFORMATION
  Report Type: 
  Country: None (occurrence: None)
  Receive Date: 20060714
  Receipt Date: 20060502
  Transmission Date: 20061208
  Serious: No
  Sender: FDA-Public Use
  Company Number: 2006SP001918

PATIENT
  Age: 72 Year
  Sex: Female
  Weight: 88.905 kg

DRUGS (17)
  1. LUNESTA [Suspect]
     Indication: INSOMNIA
     Dosage: SEE IMAGE
     Route: 048
     Dates: start: 20060401, end: 20060401
  2. LUNESTA [Suspect]
     Indication: INSOMNIA
     Dosage: SEE IMAGE
     Route: 048
     Dates: start: 20060401, end: 20060401
  3. LUNESTA [Suspect]
     Indication: INSOMNIA
     Dosage: SEE IMAGE
     Route: 048
     Dates: start: 20060401, end: 20060401
  4. LUNESTA [Suspect]
     Indication: INSOMNIA
     Dosage: SEE IMAGE
     Route: 048
     Dates: start: 20060101, end: 20060502
  5. AMITRIPTYLINE HCL [Concomitant]
  6. ZYRTEC [Concomitant]
  7. SINGULAIR [Concomitant]
  8. ZETIA [Concomitant]
  9. ADVAIR DISKUS 100/50 [Concomitant]
  10. CRESTOR [Concomitant]
  11. IPRATROPIUM BROMIDE W/SALBUTAMOL [Concomitant]
  12. FOSAMAX [Concomitant]
  13. LASIX [Concomitant]
  14. POTASSIUM [Concomitant]
  15. VITAMINS WITH MINERALS [Concomitant]
  16. AMBIEN [Concomitant]
  17. VICOPROFEN [Concomitant]

REACTIONS (2)
  - FATIGUE [None]
  - INSOMNIA [None]
